FAERS Safety Report 23780129 (Version 2)
Quarter: 2024Q2

REPORT INFORMATION
  Report Type: Report from Study
  Country: US (occurrence: US)
  Receive Date: 20240424
  Receipt Date: 20240502
  Transmission Date: 20240715
  Serious: No
  Sender: FDA-Public Use
  Company Number: US-ALXN-202404USA001371US

PATIENT
  Age: 49 Year
  Sex: Female

DRUGS (1)
  1. STRENSIQ [Suspect]
     Active Substance: ASFOTASE ALFA
     Indication: Hypophosphatasia
     Dosage: 146 MILLIGRAM, TIW
     Route: 058
     Dates: start: 20240226

REACTIONS (4)
  - Injection site erythema [Recovered/Resolved]
  - Injection site pain [Recovered/Resolved]
  - Chest pain [Recovered/Resolved]
  - Abnormal dreams [Unknown]

NARRATIVE: CASE EVENT DATE: 20240301
